FAERS Safety Report 10691579 (Version 4)
Quarter: 2015Q1

REPORT INFORMATION
  Report Type: Spontaneous
  Country: US (occurrence: US)
  Receive Date: 20150105
  Receipt Date: 20150210
  Transmission Date: 20150720
  Serious: No
  Sender: FDA-Public Use
  Company Number: US-PFIZER INC-2014363219

PATIENT
  Age: 76 Year
  Sex: Female
  Weight: 68 kg

DRUGS (6)
  1. TRIFLURIDINE. [Suspect]
     Active Substance: TRIFLURIDINE
     Indication: CATARACT OPERATION
  2. PRESERVISION SOFTGELS WITH LUTEIN [Concomitant]
     Indication: VITAMIN SUPPLEMENTATION
     Dosage: UNK
  3. TRIFLURIDINE. [Suspect]
     Active Substance: TRIFLURIDINE
     Indication: EYE INFECTION
  4. ACYCLOVIR. [Concomitant]
     Active Substance: ACYCLOVIR
     Dosage: 400 MG, 2X/DAY
  5. MURO 128 [Concomitant]
     Active Substance: SODIUM CHLORIDE
     Indication: EYE SWELLING
     Dosage: UNK, 1X/DAY
  6. TRIFLURIDINE. [Suspect]
     Active Substance: TRIFLURIDINE
     Indication: EYE DISORDER
     Dosage: UNK; ONCE A DAY OR TWICE A DAY WHEN IT GETS A LITTLE WORSE
     Route: 047

REACTIONS (5)
  - Eye irritation [Recovering/Resolving]
  - Drug ineffective [Recovering/Resolving]
  - Ocular hyperaemia [Recovering/Resolving]
  - Eye pain [Recovering/Resolving]
  - Product quality issue [Recovering/Resolving]
